FAERS Safety Report 17741876 (Version 11)
Quarter: 2025Q1

REPORT INFORMATION
  Report Type: Spontaneous
  Country: US (occurrence: US)
  Receive Date: 20200504
  Receipt Date: 20250328
  Transmission Date: 20250409
  Serious: Yes (Other)
  Sender: PFIZER
  Company Number: US-PFIZER INC-2009203252

PATIENT
  Age: 57 Year
  Sex: Male

DRUGS (5)
  1. CADUET [Suspect]
     Active Substance: AMLODIPINE BESYLATE\ATORVASTATIN CALCIUM
     Indication: Hypertension
     Dosage: 1 DF, 1X/DAY (5/80 TABLET)
     Route: 048
  2. CADUET [Suspect]
     Active Substance: AMLODIPINE BESYLATE\ATORVASTATIN CALCIUM
     Indication: Blood cholesterol abnormal
  3. MELOXICAM [Concomitant]
     Active Substance: MELOXICAM
     Dosage: UNK, DAILY
  4. MELOXICAM [Concomitant]
     Active Substance: MELOXICAM
     Dosage: UNK, ALTERNATE DAY (ONE EVERY OTHER DAY INSTEAD OF EVERY DAY)
  5. LOSARTAN [Concomitant]
     Active Substance: LOSARTAN

REACTIONS (5)
  - Arthritis infective [Unknown]
  - Myocardial infarction [Unknown]
  - Gait disturbance [Unknown]
  - Pain [Unknown]
  - Product dose omission issue [Unknown]

NARRATIVE: CASE EVENT DATE: 20090422
